FAERS Safety Report 8594354-2 (Version None)
Quarter: 2012Q3

REPORT INFORMATION
  Report Type: 
  Country: None (occurrence: None)
  Receive Date: 20120815
  Receipt Date: 20120806
  Transmission Date: 20120928
  Serious: No
  Sender: FDA-Public Use
  Company Number: US-BIOGENIDEC-2012BI029859

PATIENT
  Age: 55 Year
  Sex: Female

DRUGS (2)
  1. TYSABRI [Suspect]
     Indication: MULTIPLE SCLEROSIS
     Route: 042
     Dates: start: 20080926
  2. TYSABRI [Suspect]
     Route: 042
     Dates: end: 20120523

REACTIONS (5)
  - MYALGIA [None]
  - PYREXIA [None]
  - HEADACHE [None]
  - PHARYNGITIS STREPTOCOCCAL [None]
  - WEST NILE VIRAL INFECTION [None]
